FAERS Safety Report 10097498 (Version 1)
Quarter: 2014Q2

REPORT INFORMATION
  Report Type: Spontaneous
  Country: CA (occurrence: CA)
  Receive Date: 20140423
  Receipt Date: 20140423
  Transmission Date: 20141212
  Serious: Yes (Other)
  Sender: FDA-Public Use
  Company Number: CA-AMGEN INC.-CANSP2014028885

PATIENT
  Sex: 0

DRUGS (8)
  1. ENBREL [Suspect]
     Indication: PRODUCT USED FOR UNKNOWN INDICATION
     Dosage: 50 UNK, UNK
     Route: 065
  2. ASA [Concomitant]
     Dosage: 81 MG, UNK
  3. LIPITOR [Concomitant]
     Dosage: UNK
  4. FOLIC ACID [Concomitant]
     Dosage: UNK
  5. RAMIPRIL [Concomitant]
     Dosage: UNK
  6. DILANTIN                           /00017401/ [Concomitant]
     Dosage: UNK
  7. METOPROLOL [Concomitant]
     Dosage: UNK
  8. MTX                                /00113801/ [Concomitant]
     Dosage: 50 UNK, UNK

REACTIONS (2)
  - Convulsion [Unknown]
  - Overdose [Unknown]
